FAERS Safety Report 16296319 (Version 1)
Quarter: 2019Q2

REPORT INFORMATION
  Report Type: Spontaneous
  Country: US (occurrence: US)
  Receive Date: 20190510
  Receipt Date: 20190510
  Transmission Date: 20190711
  Serious: Yes (Other)
  Sender: FDA-Public Use
  Company Number: US-BEH-2019102032

PATIENT
  Age: 22 Year
  Sex: Female
  Weight: 90.7 kg

DRUGS (1)
  1. HIZENTRA [Suspect]
     Active Substance: HUMAN IMMUNOGLOBULIN G
     Indication: HYPOGAMMAGLOBULINAEMIA
     Dosage: 15 G, QW OVER 1:45-2.5 HOURS USING THREE SITES
     Route: 058
     Dates: start: 20180821

REACTIONS (11)
  - Injection site pain [Unknown]
  - Skin irritation [Unknown]
  - Injection site extravasation [Unknown]
  - Skin ulcer [Unknown]
  - Dermatitis [Unknown]
  - Injection site cellulitis [Unknown]
  - Injection site erythema [Unknown]
  - Pain [Unknown]
  - Cellulitis staphylococcal [Unknown]
  - Oedema [Unknown]
  - Infusion site scar [Unknown]
